FAERS Safety Report 4727696-9 (Version None)
Quarter: 2005Q3

REPORT INFORMATION
  Report Type: 
  Country: None (occurrence: None)
  Receive Date: 20050727
  Receipt Date: 20050715
  Transmission Date: 20060218
  Serious: Yes (Hospitalization, Other)
  Sender: FDA-Public Use
  Company Number: S05-GER-02281-01

PATIENT
  Age: 56 Year
  Sex: Female

DRUGS (2)
  1. CITALOPRAM HYDROBROMIDE [Suspect]
     Indication: DEPRESSION
     Dosage: 20 MG QD
     Dates: start: 20010601, end: 20021001
  2. NOCTAMID (LORMETAZEPAM) [Suspect]
     Indication: SLEEP DISORDER
     Dosage: 3 MG QD
     Dates: start: 20000601, end: 20050501

REACTIONS (1)
  - PARKINSON'S DISEASE [None]
